FAERS Safety Report 10692295 (Version 2)
Quarter: 2015Q1

REPORT INFORMATION
  Report Type: Spontaneous
  Country: US (occurrence: US)
  Receive Date: 20150106
  Receipt Date: 20150129
  Transmission Date: 20150720
  Serious: No
  Sender: FDA-Public Use
  Company Number: US-BIOGENIDEC-2014BI128453

PATIENT
  Age: 54 Year
  Sex: Male

DRUGS (9)
  1. TECFIDERA [Suspect]
     Active Substance: DIMETHYL FUMARATE
     Indication: MULTIPLE SCLEROSIS
     Route: 048
     Dates: start: 20141118
  2. FUROSEMIDE. [Concomitant]
     Active Substance: FUROSEMIDE
  3. AMITRIPTYLINE HCL [Concomitant]
     Active Substance: AMITRIPTYLINE
  4. DILTIAZEM HCL CR [Concomitant]
  5. LOPID [Concomitant]
     Active Substance: GEMFIBROZIL
  6. VICTOZA [Concomitant]
     Active Substance: LIRAGLUTIDE
  7. LISINOPRIL. [Concomitant]
     Active Substance: LISINOPRIL
  8. TECFIDERA [Suspect]
     Active Substance: DIMETHYL FUMARATE
     Indication: MULTIPLE SCLEROSIS
     Route: 048
     Dates: start: 20141118
  9. METFORMIN HCL [Concomitant]
     Active Substance: METFORMIN HYDROCHLORIDE

REACTIONS (4)
  - Pulse abnormal [Unknown]
  - Flushing [Unknown]
  - Dyspepsia [Unknown]
  - Alopecia [Unknown]

NARRATIVE: CASE EVENT DATE: 20141124
